FAERS Safety Report 18466226 (Version 1)
Quarter: 2020Q4

REPORT INFORMATION
  Report Type: Other
  Country: None (occurrence: CN)
  Receive Date: 20201104
  Receipt Date: 20201104
  Transmission Date: 20210114
  Serious: Yes (Other)
  Sender: FDA-Public Use
  Company Number: CN-JIANGSU HENGRUI MEDICINE CO., LTD.-2093603

PATIENT
  Age: 79 Year
  Sex: Female
  Weight: 50 kg

DRUGS (1)
  1. LETROZOLE TABLETS USP, 2.5?MG [Suspect]
     Active Substance: LETROZOLE
     Indication: BREAST CANCER
     Route: 048
     Dates: start: 20161001, end: 20201024

REACTIONS (1)
  - Abscess [Recovering/Resolving]

NARRATIVE: CASE EVENT DATE: 20201024
